FAERS Safety Report 8422518-7 (Version None)
Quarter: 2012Q2

REPORT INFORMATION
  Report Type: 
  Country: None (occurrence: None)
  Receive Date: 20120604
  Receipt Date: 20120518
  Transmission Date: 20120825
  Serious: Yes (Other)
  Sender: FDA-Public Use
  Company Number: US-20120025

PATIENT
  Sex: Female

DRUGS (3)
  1. FIBRINOGEN (FIBRINOGEN) [Suspect]
     Indication: THERAPEUTIC EMBOLISATION
     Dosage: INTRA-ARTERIAL
     Route: 013
  2. LIPIODOL (ETHIODIZED OIL) (ETHIODIZED OIL) [Suspect]
     Dosage: INTRA-ARTERIAL
     Route: 013
  3. THROMBIN LOCAL SOLUTION [Suspect]
     Indication: THERAPEUTIC EMBOLISATION
     Dosage: INTRA-ARTERIAL
     Route: 013

REACTIONS (2)
  - DRUG INEFFECTIVE [None]
  - OFF LABEL USE [None]
